FAERS Safety Report 22049879 (Version 1)
Quarter: 2023Q1

REPORT INFORMATION
  Report Type: Spontaneous
  Country: US (occurrence: None)
  Receive Date: 20230228
  Receipt Date: 20230228
  Transmission Date: 20230418
  Serious: No
  Sender: FDA-Public Use
  Company Number: None

PATIENT
  Age: 55 Year
  Sex: Female
  Weight: 60.78 kg

DRUGS (11)
  1. LENALIDOMIDE [Suspect]
     Active Substance: LENALIDOMIDE
     Dosage: OTHER FREQUENCY : 14D ON 7 D OFF;?
     Route: 048
     Dates: start: 202301, end: 20230227
  2. ACYCLOVIR [Concomitant]
  3. ASCORBIC ACID [Concomitant]
  4. ASPIRIN [Concomitant]
  5. DECADRON [Concomitant]
     Active Substance: DEXAMETHASONE
  6. FERROUS SULFATE [Concomitant]
  7. NORCO [Concomitant]
  8. PRILOSEC [Concomitant]
  9. PROAIR HFA [Concomitant]
  10. PROCHLORPERAZINE [Concomitant]
  11. ZOFRAN [Concomitant]

REACTIONS (2)
  - Thrombocytopenia [None]
  - Therapy interrupted [None]

NARRATIVE: CASE EVENT DATE: 20230227
